FAERS Safety Report 6293132-7 (Version None)
Quarter: 2009Q3

REPORT INFORMATION
  Report Type: 
  Country: None (occurrence: None)
  Receive Date: 20090731
  Receipt Date: 20090730
  Transmission Date: 20100115
  Serious: Yes (Death)
  Sender: FDA-Public Use
  Company Number: JP-SANOFI-SYNTHELABO-A01200907453

PATIENT
  Sex: Male
  Weight: 62.1 kg

DRUGS (12)
  1. AVASTIN [Concomitant]
     Indication: RECTAL CANCER
     Dosage: 300 MG
     Route: 042
     Dates: start: 20090608, end: 20090608
  2. ELPLAT [Suspect]
     Dosage: 130 MG
     Route: 041
     Dates: start: 20090608, end: 20090608
  3. LAXOBERON [Concomitant]
     Indication: ADVERSE DRUG REACTION
     Dosage: UNK
     Route: 048
     Dates: start: 20090525, end: 20090619
  4. MAGLAX [Concomitant]
     Indication: ADVERSE DRUG REACTION
     Route: 048
     Dates: start: 20090525, end: 20090619
  5. FLUOROURACIL [Concomitant]
     Indication: RECTAL CANCER
     Dosage: 400 MG IV BOLUS
     Route: 040
     Dates: start: 20090608, end: 20090608
  6. FLUOROURACIL [Concomitant]
     Dosage: 4000 MG INTRAVENOUS DRIP
     Route: 041
     Dates: start: 20090608, end: 20090601
  7. CYTOTEC [Concomitant]
     Indication: ANALGESIC INTERVENTION SUPPORTIVE THERAPY
     Route: 048
     Dates: start: 20090525, end: 20090619
  8. NOVAMIN [Concomitant]
     Dates: start: 20090525, end: 20090619
  9. OXINORM [Concomitant]
     Indication: CANCER PAIN
     Dates: start: 20090525, end: 20090619
  10. OXYCONTIN [Concomitant]
     Indication: CANCER PAIN
     Route: 048
     Dates: start: 20090525, end: 20090619
  11. VOLTAREN [Concomitant]
     Indication: CANCER PAIN
     Route: 048
     Dates: start: 20090514, end: 20090619
  12. ISOVORIN [Concomitant]
     Indication: RECTAL CANCER
     Dosage: 325 MG
     Route: 042
     Dates: start: 20090608, end: 20090609

REACTIONS (6)
  - ALTERED STATE OF CONSCIOUSNESS [None]
  - DISSEMINATED INTRAVASCULAR COAGULATION [None]
  - MULTI-ORGAN FAILURE [None]
  - RENAL FAILURE [None]
  - RESPIRATORY FAILURE [None]
  - TUMOUR LYSIS SYNDROME [None]
